FAERS Safety Report 5099169-8 (Version None)
Quarter: 2006Q3

REPORT INFORMATION
  Report Type: 
  Country: None (occurrence: None)
  Receive Date: 20060728
  Receipt Date: 20060609
  Transmission Date: 20061208
  Serious: No
  Sender: FDA-Public Use
  Company Number: COT_0613_2006

PATIENT
  Age: 59 Year
  Sex: Female
  Weight: 70.3075 kg

DRUGS (16)
  1. VENTAVIS [Suspect]
     Indication: PULMONARY HYPERTENSION
     Dosage: 2.5 MCG ONCE IH
     Route: 055
     Dates: start: 20060518, end: 20060518
  2. VENTAVIS [Suspect]
     Indication: PULMONARY HYPERTENSION
     Dosage: 5 MCG 5 TO 6X/DAY IH
     Route: 055
     Dates: start: 20060518
  3. ASPIRIN [Concomitant]
  4. LIPITOR [Concomitant]
  5. COREG [Concomitant]
  6. DIGOXIN [Concomitant]
  7. LASIX [Concomitant]
  8. PREVACID [Concomitant]
  9. POTASSIUM CHLORIDE [Concomitant]
  10. ALTACE [Concomitant]
  11. SILDENAFIL [Concomitant]
  12. COUMADIN [Concomitant]
  13. TRACLEER [Concomitant]
  14. PROTONIX [Concomitant]
  15. SPIRONOLACTONE [Concomitant]
  16. OXYGEN [Concomitant]

REACTIONS (2)
  - FATIGUE [None]
  - NAUSEA [None]
